FAERS Safety Report 5057270-9 (Version None)
Quarter: 2006Q3

REPORT INFORMATION
  Report Type: 
  Country: None (occurrence: None)
  Receive Date: 20060721
  Receipt Date: 20050712
  Transmission Date: 20061208
  Serious: No
  Sender: FDA-Public Use
  Company Number: US-GLAXOSMITHKLINE-A0565947A

PATIENT
  Sex: Female

DRUGS (4)
  1. AVANDIA [Suspect]
     Dosage: 4MG TWICE PER DAY
     Route: 048
     Dates: start: 20050201, end: 20050301
  2. VERAPAMIL [Concomitant]
  3. TRIAMTERENE [Concomitant]
  4. GLYBURIDE [Concomitant]

REACTIONS (8)
  - ABASIA [None]
  - DRUG ADMINISTRATION ERROR [None]
  - ERYTHEMA [None]
  - MOBILITY DECREASED [None]
  - OEDEMA PERIPHERAL [None]
  - PAIN IN EXTREMITY [None]
  - SENSORY DISTURBANCE [None]
  - WEIGHT INCREASED [None]
